FAERS Safety Report 21995824 (Version 1)
Quarter: 2023Q1

REPORT INFORMATION
  Report Type: Spontaneous
  Country: US (occurrence: US)
  Receive Date: 20230215
  Receipt Date: 20230215
  Transmission Date: 20230418
  Serious: No
  Sender: FDA-Public Use
  Company Number: US-ABBVIE-4275187

PATIENT
  Sex: Female
  Weight: 122 kg

DRUGS (2)
  1. HUMIRA [Suspect]
     Active Substance: ADALIMUMAB
     Indication: Rheumatoid arthritis
     Route: 058
     Dates: start: 202207
  2. HUMIRA [Suspect]
     Active Substance: ADALIMUMAB
     Indication: Fibromyalgia

REACTIONS (2)
  - Off label use [Not Recovered/Not Resolved]
  - Device difficult to use [Not Recovered/Not Resolved]
